FAERS Safety Report 5900677-5 (Version None)
Quarter: 2008Q3

REPORT INFORMATION
  Report Type: 
  Country: None (occurrence: None)
  Receive Date: 20080926
  Receipt Date: 20080919
  Transmission Date: 20090109
  Serious: Yes (Other)
  Sender: FDA-Public Use
  Company Number: US-PFIZER INC-2008079591

PATIENT
  Sex: Female
  Weight: 95.3 kg

DRUGS (4)
  1. XALATAN [Suspect]
  2. PREDNISONE [Concomitant]
  3. LISINOPRIL [Concomitant]
  4. PLAVIX [Concomitant]

REACTIONS (2)
  - FALL [None]
  - SPINAL FRACTURE [None]
